FAERS Safety Report 4430504-7 (Version None)
Quarter: 2004Q3

REPORT INFORMATION
  Report Type: 
  Country: None (occurrence: None)
  Receive Date: 20040721
  Receipt Date: 20031120
  Transmission Date: 20050211
  Serious: Yes (Other)
  Sender: FDA-Public Use
  Company Number: WAES 0311USA02819

PATIENT
  Age: 49 Year
  Sex: Male
  Weight: 92.9874 kg

DRUGS (2)
  1. VIOXX [Suspect]
     Dosage: 50 MG/DAILY/PO
     Route: 048
     Dates: start: 20030801, end: 20030801
  2. ZOCOR [Concomitant]

REACTIONS (1)
  - RENAL FAILURE [None]
